FAERS Safety Report 18245104 (Version 3)
Quarter: 2024Q1

REPORT INFORMATION
  Report Type: Other
  Country: AT (occurrence: None)
  Receive Date: 20200908
  Receipt Date: 20240102
  Transmission Date: 20240410
  Serious: Yes (Other)
  Sender: FDA-Public Use
  Company Number: AT-ROCHE-2670190

PATIENT
  Age: 42 Year
  Sex: Female
  Weight: 69 kg

DRUGS (15)
  1. KADCYLA [Suspect]
     Active Substance: ADO-TRASTUZUMAB EMTANSINE
     Indication: HER2 positive breast cancer
     Dosage: MOST RECENT DOSE OF TRASTUZUMAB EMTANSINE WAS RECEIVED ON 05/NOV/2018.
     Route: 042
     Dates: start: 20180723
  2. XELODA [Suspect]
     Active Substance: CAPECITABINE
     Indication: HER2 positive breast cancer
     Dosage: MOST RECENT DOSE OF CAPECITABINE WAS RECEIVED ON 17/MAR/2020.
     Route: 048
     Dates: start: 20191217
  3. HALAVEN [Suspect]
     Active Substance: ERIBULIN MESYLATE
     Indication: HER2 positive breast cancer
     Dosage: MOST RECENT DOSE OF ERIBULIN WAS RECEIVED ON 13/NOV/2019.
     Route: 042
     Dates: start: 20181130
  4. NOVALGIN (METAMIZOLE SODIUM) [Concomitant]
     Active Substance: METAMIZOLE SODIUM
     Indication: Dyspnoea
     Dosage: ONGOING = NOT CHECKED
     Dates: start: 20200813
  5. ACETAMINOPHEN [Concomitant]
     Active Substance: ACETAMINOPHEN
     Indication: Dyspnoea
     Dosage: ONGOING = NOT CHECKED
     Dates: start: 20200813
  6. ZOLPIDEM TARTRATE [Concomitant]
     Active Substance: ZOLPIDEM TARTRATE
     Indication: Insomnia
     Dates: start: 20180717, end: 20200615
  7. DEXAMETHASONE [Concomitant]
     Active Substance: DEXAMETHASONE
     Dates: start: 20180722, end: 20200615
  8. ZOFRAN [Concomitant]
     Active Substance: ONDANSETRON HYDROCHLORIDE
     Dates: start: 20180722, end: 20200615
  9. CHOLECALCIFEROL [Concomitant]
     Active Substance: CHOLECALCIFEROL
     Dates: start: 20190312, end: 20200615
  10. DICLOFENAC SODIUM [Concomitant]
     Active Substance: DICLOFENAC\DICLOFENAC SODIUM
     Dates: start: 20190624, end: 20200615
  11. FENTANYL CITRATE [Concomitant]
     Active Substance: FENTANYL CITRATE
     Dates: start: 20190624, end: 20200615
  12. FENTANYL [Concomitant]
     Active Substance: FENTANYL\FENTANYL CITRATE
     Dates: start: 20190624, end: 20200615
  13. PANTOPRAZOLE SODIUM [Concomitant]
     Active Substance: PANTOPRAZOLE SODIUM
     Dates: start: 20190624, end: 20200615
  14. BUPRENORPHINE HYDROCHLORIDE [Concomitant]
     Active Substance: BUPRENORPHINE HYDROCHLORIDE
     Dates: start: 20190624, end: 20200615
  15. PREGABALIN [Concomitant]
     Active Substance: PREGABALIN
     Indication: Musculoskeletal chest pain
     Dates: start: 20190625, end: 20200615

REACTIONS (1)
  - Pericardial effusion [Not Recovered/Not Resolved]

NARRATIVE: CASE EVENT DATE: 20200221
